FAERS Safety Report 7382244-2 (Version None)
Quarter: 2011Q1

REPORT INFORMATION
  Report Type: 
  Country: None (occurrence: None)
  Receive Date: 20110329
  Receipt Date: 20110322
  Transmission Date: 20110831
  Serious: Yes (Hospitalization, Disabling, Other)
  Sender: FDA-Public Use
  Company Number: US-MERCK-0911USA04613

PATIENT
  Age: 64 Year
  Sex: Female
  Weight: 56 kg

DRUGS (5)
  1. FOSAMAX PLUS D [Suspect]
     Route: 048
     Dates: start: 20060427, end: 20080814
  2. SYNTHROID [Concomitant]
     Indication: HYPOTHYROIDISM
     Route: 065
     Dates: start: 19640101
  3. FOSAMAX [Suspect]
     Indication: OSTEOPOROSIS PROPHYLAXIS
     Route: 048
     Dates: start: 20030820, end: 20070101
  4. FOSAMAX [Suspect]
     Route: 048
     Dates: start: 20021028, end: 20021126
  5. FOSAMAX [Suspect]
     Route: 048
     Dates: start: 20021201

REACTIONS (45)
  - STRESS FRACTURE [None]
  - ACUTE SINUSITIS [None]
  - INCREASED TENDENCY TO BRUISE [None]
  - FLATULENCE [None]
  - FAECES HARD [None]
  - SYNCOPE [None]
  - SLEEP DISORDER [None]
  - RHINORRHOEA [None]
  - CAPSULAR CONTRACTURE ASSOCIATED WITH BREAST IMPLANT [None]
  - DRUG INEFFECTIVE [None]
  - FALL [None]
  - BURSITIS [None]
  - FRACTURE NONUNION [None]
  - VAGINAL ABSCESS [None]
  - DYSPNOEA EXERTIONAL [None]
  - ARRHYTHMIA [None]
  - BONE DISORDER [None]
  - BREAST COMPLICATION ASSOCIATED WITH DEVICE [None]
  - DRY SKIN [None]
  - OPEN ANGLE GLAUCOMA [None]
  - VIRAL INFECTION [None]
  - CARDIOMYOPATHY [None]
  - DEPRESSION [None]
  - ABDOMINAL DISTENSION [None]
  - FEMUR FRACTURE [None]
  - INTRAOCULAR PRESSURE INCREASED [None]
  - SEASONAL ALLERGY [None]
  - ATROPHIC VULVOVAGINITIS [None]
  - LOW TURNOVER OSTEOPATHY [None]
  - COUGH [None]
  - ECCHYMOSIS [None]
  - JOINT EFFUSION [None]
  - MUSCULOSKELETAL PAIN [None]
  - PAIN IN JAW [None]
  - ORAL CANDIDIASIS [None]
  - MUSCULOSKELETAL STIFFNESS [None]
  - OSTEOARTHRITIS [None]
  - MUSCLE DISORDER [None]
  - DIZZINESS [None]
  - DACRYOSTENOSIS ACQUIRED [None]
  - ARTHRALGIA [None]
  - ALCOHOL ABUSE [None]
  - LACRIMATION INCREASED [None]
  - ASTHENIA [None]
  - MYALGIA [None]
